FAERS Safety Report 17086613 (Version 1)
Quarter: 2019Q4

REPORT INFORMATION
  Report Type: Spontaneous
  Country: US (occurrence: US)
  Receive Date: 20191128
  Receipt Date: 20191128
  Transmission Date: 20200122
  Serious: No
  Sender: FDA-Public Use
  Company Number: US-JNJFOC-20191133738

PATIENT
  Sex: Female

DRUGS (1)
  1. PEPCID AC [Suspect]
     Active Substance: FAMOTIDINE
     Indication: MULTIPLE ALLERGIES
     Route: 048

REACTIONS (1)
  - Product use in unapproved indication [Unknown]
